FAERS Safety Report 8286886-1 (Version None)
Quarter: 2012Q2

REPORT INFORMATION
  Report Type: 
  Country: None (occurrence: None)
  Receive Date: 20120416
  Receipt Date: 20120405
  Transmission Date: 20120825
  Serious: Yes (Hospitalization, Other)
  Sender: FDA-Public Use
  Company Number: US-BAYER-2011-094725

PATIENT
  Age: 50 Year
  Sex: Female
  Weight: 61.224 kg

DRUGS (8)
  1. BUPROPION HYDROCHLORIDE [Concomitant]
     Indication: DEPRESSION
  2. MELOXICAM [Concomitant]
     Indication: PAIN
     Dosage: UNK
     Dates: start: 20070101
  3. LOESTRIN 1.5/30 [Concomitant]
  4. DROSPIRENONE AND ETHINYL ESTRADIOL [Suspect]
     Indication: CONTRACEPTION
     Dosage: UNK
     Dates: start: 20080701, end: 20100101
  5. YASMIN [Suspect]
     Indication: CONTRACEPTION
     Dosage: UNK
     Dates: start: 20070201, end: 20080701
  6. FUROSEMIDE [Concomitant]
     Indication: SWELLING
     Dosage: OCCASIONAL USE
     Dates: start: 19900101
  7. BUPROPION HYDROCHLORIDE [Concomitant]
     Indication: ANXIETY
     Dosage: 150 MG, DAILY
     Route: 048
  8. PRILOSEC [Concomitant]
     Dosage: 20 MG, DAILY
     Route: 048

REACTIONS (7)
  - ABDOMINAL PAIN [None]
  - PULMONARY EMBOLISM [None]
  - CHOLECYSTITIS CHRONIC [None]
  - INJURY [None]
  - BILIARY COLIC [None]
  - CHOLELITHIASIS [None]
  - PAIN [None]
